FAERS Safety Report 20841809 (Version 1)
Quarter: 2022Q2

REPORT INFORMATION
  Report Type: Spontaneous
  Country: US (occurrence: US)
  Receive Date: 20220518
  Receipt Date: 20220518
  Transmission Date: 20220721
  Serious: Yes (Other)
  Sender: FDA-Public Use
  Company Number: US-LUPIN PHARMACEUTICALS INC.-2022-07092

PATIENT
  Age: 53 Year
  Sex: Male

DRUGS (3)
  1. METRONIDAZOLE [Suspect]
     Active Substance: METRONIDAZOLE
     Indication: Giardiasis
     Dosage: UNK
     Route: 065
  2. TINIDAZOLE [Suspect]
     Active Substance: TINIDAZOLE
     Indication: Giardiasis
     Dosage: UNK
     Route: 065
  3. QUINACRINE [Concomitant]
     Active Substance: QUINACRINE
     Indication: Giardiasis
     Dosage: 100 MILLIGRAM, TID
     Route: 065

REACTIONS (2)
  - Treatment failure [Unknown]
  - Off label use [Unknown]
